FAERS Safety Report 13009495 (Version 1)
Quarter: 2016Q4

REPORT INFORMATION
  Report Type: Report from Study
  Country: US (occurrence: US)
  Receive Date: 20161208
  Receipt Date: 20161208
  Transmission Date: 20170207
  Serious: No
  Sender: FDA-Public Use
  Company Number: US-JNJFOC-20161202226

PATIENT
  Age: 72 Year
  Sex: Male

DRUGS (3)
  1. SIMPONI ARIA [Suspect]
     Active Substance: GOLIMUMAB
     Indication: RHEUMATOID ARTHRITIS
     Route: 042
     Dates: start: 20161003, end: 20161003
  2. SIMPONI ARIA [Suspect]
     Active Substance: GOLIMUMAB
     Indication: RHEUMATOID ARTHRITIS
     Route: 042
     Dates: start: 20100826
  3. SIMPONI ARIA [Suspect]
     Active Substance: GOLIMUMAB
     Indication: RHEUMATOID ARTHRITIS
     Route: 042
     Dates: start: 20160826, end: 20160826

REACTIONS (8)
  - Dental implantation [Recovered/Resolved]
  - Biopsy skin [Recovered/Resolved]
  - Tooth extraction [Recovered/Resolved]
  - Skin infection [Recovered/Resolved]
  - Tenosynovitis [Recovering/Resolving]
  - Squamous cell carcinoma of skin [Recovered/Resolved]
  - Biopsy [Recovered/Resolved]
  - Upper respiratory tract infection [Recovered/Resolved]

NARRATIVE: CASE EVENT DATE: 20160827
